FAERS Safety Report 10367669 (Version 1)
Quarter: 2014Q1

REPORT INFORMATION
  Report Type: Spontaneous
  Country: US (occurrence: None)
  Receive Date: 20140306
  Receipt Date: 20140306
  Transmission Date: 20141002
  Serious: Yes (Other)
  Sender: FDA-Public Use
  Company Number: 163-21880-13023851

PATIENT
  Sex: Female
  Weight: 253 kg

DRUGS (11)
  1. REVLIMID (LENALIDOMIDE) (CAPSULES) [Suspect]
     Indication: PLASMA CELL MYELOMA
     Route: 048
     Dates: start: 20101011, end: 20110203
  2. ZOMETA (ZOLEDRONIC ACID) [Concomitant]
  3. LEVOTHYROXINE (LEVOTHYROXINE) [Concomitant]
  4. VITAMINS D3 (COLECACLCIFEROL) [Concomitant]
  5. BACLOFEN (BACLOFEN) [Concomitant]
  6. HYDROCHLOROTHIAZIDE (HYDROCHLOROTHIAZIDE) [Concomitant]
  7. IBUPROFEN (IBUPROFEN) [Concomitant]
  8. CITALOPRAM (CIRALOPRAM) [Concomitant]
  9. SIMVASTATIN (SIMVASTATIN) [Concomitant]
  10. OXYCODONE (OXYODONE) [Concomitant]
  11. KLOR-CON (POTASSIUM CHLORIDE) [Concomitant]

REACTIONS (2)
  - Swollen tongue [None]
  - Local swelling [None]
